FAERS Safety Report 11323027 (Version 1)
Quarter: 2015Q3

REPORT INFORMATION
  Report Type: Spontaneous
  Country: FR (occurrence: FR)
  Receive Date: 20150730
  Receipt Date: 20150730
  Transmission Date: 20151125
  Serious: Yes (Death, Congenital Anomaly)
  Sender: FDA-Public Use
  Company Number: FR-HOSPIRA-2873849

PATIENT

DRUGS (1)
  1. PROPOFOL. [Suspect]
     Active Substance: PROPOFOL
     Indication: PRODUCT USED FOR UNKNOWN INDICATION
     Route: 064

REACTIONS (5)
  - Foetal malformation [Fatal]
  - Foetal death [Fatal]
  - Foetal cardiac disorder [Fatal]
  - Congenital central nervous system anomaly [Fatal]
  - Maternal exposure timing unspecified [Fatal]
